FAERS Safety Report 11798500 (Version 1)
Quarter: 2015Q4

REPORT INFORMATION
  Report Type: Spontaneous
  Country: US (occurrence: US)
  Receive Date: 20151203
  Receipt Date: 20151203
  Transmission Date: 20160305
  Serious: No
  Sender: FDA-Public Use
  Company Number: US-REGENERON PHARMACEUTICALS, INC.-2015-11524

PATIENT

DRUGS (6)
  1. EYLEA [Suspect]
     Active Substance: AFLIBERCEPT
     Indication: NEOVASCULAR AGE-RELATED MACULAR DEGENERATION
     Dosage: UNK
     Route: 031
     Dates: start: 20150506, end: 20150605
  2. THERAPEUTIC MULTIVITAMIN           /01824401/ [Concomitant]
     Dosage: UNK, QD
  3. LOSARTAN. [Concomitant]
     Active Substance: LOSARTAN
     Dosage: 25 MG MILLIGRAM(S), UNK
     Dates: start: 201505
  4. PRESERVISION AREDS [Concomitant]
     Active Substance: MINERALS\VITAMINS
     Dosage: 1 TABLET
  5. ASTAXANTHIN [Concomitant]
     Dosage: 12 MG MILLIGRAM(S), QD
     Dates: start: 201206
  6. COZAAR [Concomitant]
     Active Substance: LOSARTAN POTASSIUM
     Indication: BLOOD PRESSURE INCREASED
     Dosage: 100 MG MILLIGRAM(S), UNK
     Dates: end: 201505

REACTIONS (6)
  - Ocular discomfort [Unknown]
  - Ocular hyperaemia [Unknown]
  - Drug hypersensitivity [Recovering/Resolving]
  - Conjunctivitis [Recovered/Resolved]
  - Eye swelling [Unknown]
  - Eye pain [Recovering/Resolving]

NARRATIVE: CASE EVENT DATE: 201505
